FAERS Safety Report 17663641 (Version 1)
Quarter: 2020Q2

REPORT INFORMATION
  Report Type: Spontaneous
  Country: US (occurrence: US)
  Receive Date: 20200414
  Receipt Date: 20200414
  Transmission Date: 20200713
  Serious: No
  Sender: FDA-Public Use
  Company Number: US-GLAXOSMITHKLINE-US2020062008

PATIENT

DRUGS (2)
  1. EXCEDRIN PM TRIPLE ACTION CAPLETS [Suspect]
     Active Substance: ACETAMINOPHEN\ASPIRIN\DIPHENHYDRAMINE CITRATE
     Indication: TENSION HEADACHE
     Dosage: UNK
  2. EXCEDRIN [Suspect]
     Active Substance: ACETAMINOPHEN\ASPIRIN\CAFFEINE
     Indication: TENSION HEADACHE
     Dosage: UNK

REACTIONS (4)
  - Poor quality sleep [Unknown]
  - Drug ineffective [Unknown]
  - Dizziness [Unknown]
  - Vomiting [Unknown]
